FAERS Safety Report 20429654 (Version 1)
Quarter: 2022Q1

REPORT INFORMATION
  Report Type: Report from Study
  Country: FR (occurrence: FR)
  Receive Date: 20220204
  Receipt Date: 20220204
  Transmission Date: 20220423
  Serious: Yes (Other)
  Sender: FDA-Public Use
  Company Number: FR-SERVIER-S19008968

PATIENT

DRUGS (12)
  1. ONCASPAR [Suspect]
     Active Substance: PEGASPARGASE
     Indication: Acute lymphocytic leukaemia
     Dosage: 2000 IU, D6
     Route: 042
     Dates: start: 20190629
  2. DEXAMETHASONE [Suspect]
     Active Substance: DEXAMETHASONE
     Indication: Acute lymphocytic leukaemia
     Dosage: 16 MG, D1 TO D5
     Route: 048
     Dates: start: 20190624, end: 20190628
  3. DEXAMETHASONE [Suspect]
     Active Substance: DEXAMETHASONE
     Dosage: 8 MG, D1 TO D5
     Route: 048
     Dates: start: 20190629, end: 20190629
  4. CYTARABINE [Suspect]
     Active Substance: CYTARABINE
     Indication: Acute lymphocytic leukaemia
     Dosage: 3200 MG, D1 TO D2
     Route: 042
     Dates: start: 20190624, end: 20190625
  5. CYTARABINE [Suspect]
     Active Substance: CYTARABINE
     Dosage: 30 MG, D5
     Route: 037
     Dates: start: 20190628, end: 20190628
  6. ETOPOSIDE [Suspect]
     Active Substance: ETOPOSIDE
     Indication: Acute lymphocytic leukaemia
     Dosage: 120 MG, D3 TO D5
     Route: 042
     Dates: start: 20190626, end: 20190628
  7. MITOXANTRONE HYDROCHLORIDE [Suspect]
     Active Substance: MITOXANTRONE HYDROCHLORIDE
     Indication: Acute lymphocytic leukaemia
     Dosage: 6.4 MG, D3, D4
     Route: 042
     Dates: start: 20190626, end: 20190627
  8. METHOTREXATE [Suspect]
     Active Substance: METHOTREXATE
     Indication: Acute lymphocytic leukaemia
     Dosage: 12 MG, D5
     Route: 037
     Dates: start: 20190628, end: 20190628
  9. HYDROCORTISONE SODIUM SUCCINATE [Suspect]
     Active Substance: HYDROCORTISONE SODIUM SUCCINATE
     Indication: Acute lymphocytic leukaemia
     Dosage: 15 MG, D5
     Route: 037
     Dates: start: 20190628, end: 20190628
  10. TN UNSPECIFIED [Concomitant]
     Indication: Prophylaxis
     Dosage: 4 MG, UNK
     Route: 042
     Dates: start: 20190302
  11. ESOMEPRAZOLE [Concomitant]
     Active Substance: ESOMEPRAZOLE
     Indication: Product used for unknown indication
     Dosage: 1 UNK, UNK
     Route: 048
     Dates: start: 20190303
  12. Bactrime [Concomitant]
     Indication: Product used for unknown indication
     Dosage: 10 ML, UNK
     Route: 048
     Dates: start: 20190304

REACTIONS (1)
  - Gamma-glutamyltransferase increased [Recovered/Resolved]

NARRATIVE: CASE EVENT DATE: 20190711
